FAERS Safety Report 20612897 (Version 1)
Quarter: 2022Q1

REPORT INFORMATION
  Report Type: Spontaneous
  Country: US (occurrence: US)
  Receive Date: 20220318
  Receipt Date: 20220318
  Transmission Date: 20220423
  Serious: Yes (Other)
  Sender: FDA-Public Use
  Company Number: US-ELI_LILLY_AND_COMPANY-US202203005438

PATIENT
  Age: 62 Year
  Sex: Male

DRUGS (1)
  1. BEBTELOVIMAB [Suspect]
     Active Substance: BEBTELOVIMAB
     Indication: COVID-19
     Dosage: 175 MG, SINGLE
     Route: 042
     Dates: start: 20220308, end: 20220308

REACTIONS (7)
  - Loss of consciousness [Unknown]
  - Chest pain [Unknown]
  - Nausea [Unknown]
  - Dizziness [Unknown]
  - Pallor [Unknown]
  - Hyperhidrosis [Unknown]
  - Cold sweat [Unknown]

NARRATIVE: CASE EVENT DATE: 20220308
